FAERS Safety Report 12949690 (Version 1)
Quarter: 2016Q4

REPORT INFORMATION
  Report Type: Spontaneous
  Country: DE (occurrence: DE)
  Receive Date: 20161116
  Receipt Date: 20161116
  Transmission Date: 20170207
  Serious: Yes (Disabling)
  Sender: FDA-Public Use
  Company Number: DE-MYLANLABS-2016M1049235

PATIENT

DRUGS (1)
  1. VENLAFAXINE [Suspect]
     Active Substance: VENLAFAXINE HYDROCHLORIDE
     Indication: DEPRESSION
     Dosage: 150 MG, UNK
     Route: 048
     Dates: start: 201105

REACTIONS (4)
  - Hypoaesthesia [Unknown]
  - Visual impairment [Unknown]
  - Nightmare [Unknown]
  - Night sweats [Unknown]

NARRATIVE: CASE EVENT DATE: 2014
